FAERS Safety Report 25091968 (Version 2)
Quarter: 2025Q4

REPORT INFORMATION
  Report Type: Spontaneous
  Country: US (occurrence: US)
  Receive Date: 20250318
  Receipt Date: 20251218
  Transmission Date: 20260119
  Serious: No
  Sender: NOVARTIS
  Company Number: US-002147023-NVSC2025US042459

PATIENT
  Sex: Male

DRUGS (4)
  1. TAFINLAR [Suspect]
     Active Substance: DABRAFENIB MESYLATE
     Indication: Brain neoplasm malignant
     Dosage: 40 MG, BID (O/S)
     Route: 048
     Dates: start: 202409
  2. TAFINLAR [Suspect]
     Active Substance: DABRAFENIB MESYLATE
     Dosage: 50 MG, BID
     Route: 048
     Dates: start: 202409
  3. MEKINIST [Suspect]
     Active Substance: TRAMETINIB DIMETHYL SULFOXIDE
     Indication: Brain neoplasm malignant
     Dosage: 10 ML, QD (ORAL SOLN)
     Route: 048
     Dates: start: 202409
  4. MEKINIST [Suspect]
     Active Substance: TRAMETINIB DIMETHYL SULFOXIDE
     Dosage: 12.5 ML, QD
     Route: 048
     Dates: start: 202409

REACTIONS (2)
  - Arthralgia [Unknown]
  - Weight increased [Unknown]
